FAERS Safety Report 9917945 (Version 2)
Quarter: 2014Q2

REPORT INFORMATION
  Report Type: Spontaneous
  Country: US (occurrence: US)
  Receive Date: 20140222
  Receipt Date: 20140618
  Transmission Date: 20141212
  Serious: No
  Sender: FDA-Public Use
  Company Number: US-009507513-1402USA010143

PATIENT
  Age: 35 Year
  Sex: Female
  Weight: 62 kg

DRUGS (2)
  1. FOLLISTIM [Suspect]
     Indication: INFERTILITY
     Dosage: 150 IU DAILY
     Route: 058
     Dates: start: 20140217, end: 20140226
  2. MENOPUR [Concomitant]
     Indication: INFERTILITY
     Dosage: 75IU
     Route: 058
     Dates: start: 20140217, end: 20140226

REACTIONS (5)
  - Palpitations [Recovered/Resolved]
  - Dizziness [Recovered/Resolved]
  - Dyspnoea [Recovered/Resolved]
  - Paraesthesia [Recovered/Resolved]
  - Nausea [Recovered/Resolved]
